FAERS Safety Report 16474575 (Version 1)
Quarter: 2019Q3

REPORT INFORMATION
  Report Type: Spontaneous
  Country: US (occurrence: US)
  Receive Date: 20190624
  Receipt Date: 20190624
  Transmission Date: 20191004
  Serious: No
  Sender: FDA-Public Use
  Company Number: None

PATIENT
  Age: 51 Year
  Sex: Female

DRUGS (12)
  1. OMEPRAZOLE 40 MG [Concomitant]
     Active Substance: OMEPRAZOLE
     Dates: start: 20190428, end: 20190624
  2. CLONEZEPAM 2 MG [Concomitant]
     Dates: start: 20190601
  3. ANASTRAZOLE 1 MG [Concomitant]
     Dates: start: 20181114
  4. WELLBUTRIN [Concomitant]
     Active Substance: BUPROPION HYDROCHLORIDE
     Dates: start: 20161014
  5. ZOFRAN 4 MG [Concomitant]
     Dates: start: 20161014
  6. CALCIUM 600 MG [Concomitant]
     Dates: start: 20170301
  7. LEXAPRO 5MG [Concomitant]
     Dates: start: 20170301
  8. OXYCODONE 10 MG [Concomitant]
     Dates: start: 20190612
  9. BUPROPRION 300 MG XL [Concomitant]
     Dates: start: 20190127
  10. KISQALI [Suspect]
     Active Substance: RIBOCICLIB
     Route: 048
  11. VITAMIN D 50000 [Concomitant]
     Dates: start: 20170301
  12. IBUPROFEN 800 MG [Concomitant]
     Active Substance: IBUPROFEN
     Dates: start: 20190513

REACTIONS (3)
  - Headache [None]
  - Malignant neoplasm progression [None]
  - Nausea [None]

NARRATIVE: CASE EVENT DATE: 20190621
